FAERS Safety Report 23282323 (Version 1)
Quarter: 2023Q4

REPORT INFORMATION
  Report Type: Spontaneous
  Country: US (occurrence: US)
  Receive Date: 20231211
  Receipt Date: 20231211
  Transmission Date: 20240110
  Serious: Yes (Life-Threatening, Hospitalization, Other)
  Sender: FDA-Public Use
  Company Number: US-MYLANLABS-2023M1131769

PATIENT
  Age: 11 Year
  Sex: Female

DRUGS (16)
  1. CYTARABINE [Suspect]
     Active Substance: CYTARABINE
     Indication: B-cell type acute leukaemia
     Dosage: UNK, AS INDUCTION THERAPY
     Route: 065
     Dates: start: 201810
  2. CYTARABINE [Suspect]
     Active Substance: CYTARABINE
     Dosage: AS CONSOLIDATION THERAPY
     Route: 065
     Dates: start: 201902
  3. METHOTREXATE [Suspect]
     Active Substance: METHOTREXATE
     Indication: B-cell type acute leukaemia
     Dosage: AS INDUCTION THERAPY
     Route: 037
     Dates: start: 201810
  4. METHOTREXATE [Suspect]
     Active Substance: METHOTREXATE
     Dosage: AS CONSOLIDATION THERAPY
     Route: 037
     Dates: start: 201902
  5. MERCAPTOPURINE [Suspect]
     Active Substance: MERCAPTOPURINE
     Indication: B-cell type acute leukaemia
     Dosage: AS CONSOLIDATION THERAPY
     Route: 065
     Dates: start: 201902
  6. PREDNISONE [Suspect]
     Active Substance: PREDNISONE
     Indication: B-cell type acute leukaemia
     Dosage: AS INDUCTION THERAPY
     Route: 065
     Dates: start: 201810
  7. VINCRISTINE [Suspect]
     Active Substance: VINCRISTINE
     Indication: B-cell type acute leukaemia
     Dosage: AS INDUCTION THERAPY
     Route: 065
     Dates: start: 201810
  8. VINCRISTINE [Suspect]
     Active Substance: VINCRISTINE
     Dosage: AS CONSOLIDATION THERAPY
     Route: 065
     Dates: start: 201902
  9. DAUNORUBICIN [Suspect]
     Active Substance: DAUNORUBICIN
     Indication: B-cell type acute leukaemia
     Dosage: AS INDUCTION THERAPY
     Route: 065
     Dates: start: 201810
  10. PEGASPARGASE [Suspect]
     Active Substance: PEGASPARGASE
     Indication: B-cell type acute leukaemia
     Dosage: AS INDUCTION THERAPY
     Route: 065
     Dates: start: 201810
  11. PEGASPARGASE [Suspect]
     Active Substance: PEGASPARGASE
     Dosage: AS CONSOLIDATION THERAPY
     Route: 065
     Dates: start: 201902
  12. CYCLOPHOSPHAMIDE [Suspect]
     Active Substance: CYCLOPHOSPHAMIDE
     Indication: B-cell type acute leukaemia
     Dosage: AS CONSOLIDATION THERAPY
     Route: 065
     Dates: start: 201902
  13. BLINATUMOMAB [Concomitant]
     Active Substance: BLINATUMOMAB
     Indication: B-cell type acute leukaemia
     Dosage: 15 MICROGRAM/SQ. METER, QD, INFUSION FOR 2 CYCLES
     Route: 065
     Dates: start: 201812
  14. BLINATUMOMAB [Concomitant]
     Active Substance: BLINATUMOMAB
     Dosage: 15 MICROGRAM/SQ. METER, QD, EACH CYCLE OF 35 DAYS WITH 28 DAYS OF CONTINUOUS INFUSION, COMPLETED THE
     Route: 065
     Dates: start: 201904
  15. DEXAMETHASONE [Concomitant]
     Active Substance: DEXAMETHASONE
     Indication: Product used for unknown indication
     Dosage: UNK
     Route: 065
  16. PRIVIGEN [Concomitant]
     Active Substance: HUMAN IMMUNOGLOBULIN G
     Indication: Product used for unknown indication
     Dosage: UNK
     Route: 042

REACTIONS (13)
  - Multiple organ dysfunction syndrome [Recovered/Resolved]
  - Ventricular arrhythmia [Recovered/Resolved]
  - Torsade de pointes [Recovered/Resolved]
  - Syncope [Recovered/Resolved]
  - Febrile neutropenia [Recovered/Resolved]
  - Cryptococcal fungaemia [Recovered/Resolved]
  - Asthenia [Recovered/Resolved]
  - Pseudomonas infection [Recovered/Resolved]
  - Sepsis [Recovered/Resolved]
  - Aspergillus infection [Recovered/Resolved]
  - Fungaemia [Recovered/Resolved]
  - Myelosuppression [Recovered/Resolved]
  - Hypertension [Recovered/Resolved]

NARRATIVE: CASE EVENT DATE: 20181001
